FAERS Safety Report 7100221-3 (Version None)
Quarter: 2010Q4

REPORT INFORMATION
  Report Type: 
  Country: None (occurrence: None)
  Receive Date: 20101112
  Receipt Date: 20101104
  Transmission Date: 20110411
  Serious: Yes (Hospitalization)
  Sender: FDA-Public Use
  Company Number: HK-ABBOTT-10P-075-0684699-00

PATIENT
  Age: 15 Year
  Sex: Female

DRUGS (9)
  1. SIBUTRAMINE HYDROCHLORIDE MONOHYDRATE [Suspect]
     Indication: PRODUCT USED FOR UNKNOWN INDICATION
  2. CHRYSOPHANOL [Suspect]
     Indication: PRODUCT USED FOR UNKNOWN INDICATION
  3. CAFFEINE [Suspect]
     Indication: PRODUCT USED FOR UNKNOWN INDICATION
  4. PHENOLPHTHALEIN [Suspect]
     Indication: PRODUCT USED FOR UNKNOWN INDICATION
  5. MAZINDOL [Suspect]
     Indication: PRODUCT USED FOR UNKNOWN INDICATION
  6. EMODIN [Suspect]
     Indication: PRODUCT USED FOR UNKNOWN INDICATION
  7. ALOE-EMODIN [Suspect]
     Indication: PRODUCT USED FOR UNKNOWN INDICATION
  8. HYDROCHLOROTHIAZIDE [Suspect]
     Indication: PRODUCT USED FOR UNKNOWN INDICATION
  9. FENFLURAMINE [Suspect]
     Indication: PRODUCT USED FOR UNKNOWN INDICATION

REACTIONS (2)
  - AGGRESSION [None]
  - DELUSION [None]
